FAERS Safety Report 4556487-7 (Version None)
Quarter: 2005Q1

REPORT INFORMATION
  Report Type: 
  Country: None (occurrence: None)
  Receive Date: 20050118
  Receipt Date: 20050107
  Transmission Date: 20050727
  Serious: Yes (Death)
  Sender: FDA-Public Use
  Company Number: B0363929A

PATIENT

DRUGS (8)
  1. HYCAMTIN [Suspect]
     Indication: ACUTE MYELOID LEUKAEMIA
     Dosage: 4.5 MG/M2/CONTINUOUS/INTRAVENOUS
     Route: 042
  2. CYTARABINE [Suspect]
     Indication: ACUTE MYELOID LEUKAEMIA
     Dosage: 2 G/M2/CONTINOUS/INTRAVENOUS
     Route: 042
  3. MITOXANTRONE [Suspect]
     Indication: ACUTE MYELOID LEUKAEMIA
     Dosage: 40 MG/M2
  4. ALLOPURINOL [Concomitant]
  5. ALUMINUM HYDROXIDE GEL [Concomitant]
  6. CORTICOSTEROID [Concomitant]
  7. ANTI-EMETIC [Concomitant]
  8. NORFLOXACIN [Concomitant]

REACTIONS (2)
  - FEBRILE NEUTROPENIA [None]
  - MULTI-ORGAN FAILURE [None]
